FAERS Safety Report 7660024-8 (Version None)
Quarter: 2011Q3

REPORT INFORMATION
  Report Type: 
  Country: None (occurrence: None)
  Receive Date: 20110805
  Receipt Date: 20110726
  Transmission Date: 20111222
  Serious: Yes (Other)
  Sender: FDA-Public Use
  Company Number: CA-JNJFOC-20110800325

PATIENT
  Sex: Female
  Weight: 48 kg

DRUGS (1)
  1. REMICADE [Suspect]
     Indication: PRODUCT USED FOR UNKNOWN INDICATION
     Route: 042

REACTIONS (6)
  - OROPHARYNGEAL DISCOMFORT [None]
  - EYE SWELLING [None]
  - HEADACHE [None]
  - DIZZINESS [None]
  - PARAESTHESIA [None]
  - INFUSION RELATED REACTION [None]
